FAERS Safety Report 12648379 (Version 7)
Quarter: 2018Q2

REPORT INFORMATION
  Report Type: Report from Study
  Country: AU (occurrence: AU)
  Receive Date: 20160812
  Receipt Date: 20180424
  Transmission Date: 20180711
  Serious: Yes (Death, Life-Threatening, Hospitalization, Disabling)
  Sender: FDA-Public Use
  Company Number: AU-CELGENEUS-AUS-2016060006

PATIENT
  Age: 49 Year
  Sex: Male

DRUGS (2)
  1. REVLIMID [Suspect]
     Active Substance: LENALIDOMIDE
     Dosage: 7.5 MG
     Route: 048
     Dates: start: 20160427, end: 20160530
  2. REVLIMID [Suspect]
     Active Substance: LENALIDOMIDE
     Indication: CHRONIC LYMPHOCYTIC LEUKAEMIA
     Dosage: 5 MG
     Route: 048
     Dates: start: 20160302, end: 20160426

REACTIONS (2)
  - Pneumonia aspiration [Fatal]
  - Lung infiltration [Not Recovered/Not Resolved]

NARRATIVE: CASE EVENT DATE: 20160530
